FAERS Safety Report 8190117-0 (Version None)
Quarter: 2012Q1

REPORT INFORMATION
  Report Type: 
  Country: None (occurrence: None)
  Receive Date: 20120307
  Receipt Date: 20120307
  Transmission Date: 20120608
  Serious: No
  Sender: FDA-Public Use
  Company Number: None

PATIENT
  Sex: Female
  Weight: 65.77 kg

DRUGS (1)
  1. AMPHETAMINE AND DEXTROAMPHETAMINE SALTS [Suspect]
     Indication: ATTENTION DEFICIT/HYPERACTIVITY DISORDER
     Dosage: 20.0 MG
     Route: 048
     Dates: start: 20000101, end: 20110801

REACTIONS (13)
  - DEPRESSION [None]
  - NAUSEA [None]
  - PRODUCT FORMULATION ISSUE [None]
  - DIARRHOEA [None]
  - FATIGUE [None]
  - IRRITABILITY [None]
  - HEADACHE [None]
  - DIZZINESS [None]
  - ROAD TRAFFIC ACCIDENT [None]
  - DRUG INEFFECTIVE [None]
  - ABDOMINAL PAIN UPPER [None]
  - DISTURBANCE IN ATTENTION [None]
  - FEELING ABNORMAL [None]
